FAERS Safety Report 5578795-3 (Version None)
Quarter: 2007Q4

REPORT INFORMATION
  Report Type: 
  Country: None (occurrence: None)
  Receive Date: 20071228
  Receipt Date: 20071228
  Transmission Date: 20080405
  Serious: No
  Sender: FDA-Public Use
  Company Number: None

PATIENT
  Age: 61 Year
  Sex: Male

DRUGS (1)
  1. IMATINIB [Suspect]
     Dosage: 200MG  HS  PO
     Route: 048
     Dates: start: 20071005, end: 20071012

REACTIONS (3)
  - ANAEMIA [None]
  - HAEMORRHAGE [None]
  - PANCYTOPENIA [None]
